FAERS Safety Report 9031439 (Version 1)
Quarter: 2013Q1

REPORT INFORMATION
  Report Type: Spontaneous
  Country: LT (occurrence: LT)
  Receive Date: 20130124
  Receipt Date: 20130124
  Transmission Date: 20140127
  Serious: Yes (Hospitalization)
  Sender: FDA-Public Use
  Company Number: LT-ASTRAZENECA-2013SE03042

PATIENT
  Age: 67 Year
  Sex: Female

DRUGS (2)
  1. BETALOC ZOK [Suspect]
     Indication: ATRIAL FIBRILLATION
     Route: 048
     Dates: start: 200609, end: 20130108
  2. LACIPIL [Concomitant]
     Indication: ESSENTIAL HYPERTENSION
     Dates: start: 2006

REACTIONS (1)
  - Atrioventricular block [Recovering/Resolving]
